FAERS Safety Report 9931549 (Version 1)
Quarter: 2014Q1

REPORT INFORMATION
  Report Type: Spontaneous
  Country: US (occurrence: US)
  Receive Date: 20140228
  Receipt Date: 20140228
  Transmission Date: 20141002
  Serious: Yes (Other)
  Sender: FDA-Public Use
  Company Number: US-AMGEN-USASP2014013589

PATIENT
  Age: 55 Year
  Sex: Female

DRUGS (1)
  1. ENBREL [Suspect]
     Indication: PSORIASIS
     Dosage: 50 MG, QWK
     Route: 065
     Dates: start: 20080902, end: 20140210

REACTIONS (3)
  - Diverticulitis [Not Recovered/Not Resolved]
  - Arthralgia [Not Recovered/Not Resolved]
  - Upper respiratory tract infection [Recovered/Resolved]
